FAERS Safety Report 17436015 (Version 1)
Quarter: 2020Q1

REPORT INFORMATION
  Report Type: Spontaneous
  Country: PL (occurrence: PL)
  Receive Date: 20200219
  Receipt Date: 20200219
  Transmission Date: 20200409
  Serious: Yes (Other)
  Sender: FDA-Public Use
  Company Number: PL-BAUSCH-BL-2020-005111

PATIENT
  Age: 61 Year
  Sex: Female

DRUGS (2)
  1. XIFAXAN [Suspect]
     Active Substance: RIFAXIMIN
     Indication: PRODUCT USE IN UNAPPROVED INDICATION
  2. XIFAXAN [Suspect]
     Active Substance: RIFAXIMIN
     Indication: GASTROINTESTINAL DISORDER
     Dosage: 2DF 2/DAYS FOR 3D, 1DF 2/DAYS FOR 8D; 10-DAYS OFF; 2DF 2/DAYS FOR 7D; 14-DAYS OFF; 2DF 2/DAYS FOR 7D
     Route: 048
     Dates: start: 20190920, end: 201910

REACTIONS (7)
  - Platelet distribution width increased [Not Recovered/Not Resolved]
  - Vulvovaginal candidiasis [Not Recovered/Not Resolved]
  - Mean platelet volume decreased [Not Recovered/Not Resolved]
  - Intentional product use issue [Recovered/Resolved]
  - Anorectal discomfort [Recovered/Resolved]
  - Neoplasm malignant [Not Recovered/Not Resolved]
  - Thrombocytopenia [Not Recovered/Not Resolved]

NARRATIVE: CASE EVENT DATE: 2019
